FAERS Safety Report 23956855 (Version 1)
Quarter: 2024Q2

REPORT INFORMATION
  Report Type: Spontaneous
  Country: US (occurrence: US)
  Receive Date: 20240610
  Receipt Date: 20240610
  Transmission Date: 20240716
  Serious: No
  Sender: FDA-Public Use
  Company Number: US-Oxford Pharmaceuticals, LLC-2157774

PATIENT
  Sex: Female

DRUGS (1)
  1. SPIRONOLACTONE [Suspect]
     Active Substance: SPIRONOLACTONE
     Indication: Blood pressure measurement
     Dates: start: 20231219

REACTIONS (5)
  - Blood aldosterone increased [Unknown]
  - Drug hypersensitivity [Unknown]
  - Renal disorder [Unknown]
  - Adrenal cyst [Unknown]
  - Blood pressure increased [Recovering/Resolving]
